FAERS Safety Report 23882426 (Version 3)
Quarter: 2024Q3

REPORT INFORMATION
  Report Type: Spontaneous
  Country: EG (occurrence: EG)
  Receive Date: 20240522
  Receipt Date: 20240709
  Transmission Date: 20241016
  Serious: Yes (Life-Threatening, Hospitalization)
  Sender: NOVO NORDISK
  Company Number: EG-NOVOPROD-1221870

PATIENT
  Age: 854 Month
  Sex: Male

DRUGS (3)
  1. INSULIN HUMAN [Suspect]
     Active Substance: INSULIN HUMAN
     Indication: Diabetes mellitus
     Dosage: 80 IU, QD(50U MORNING 30 NIGHT)
     Route: 058
     Dates: start: 2012
  2. VILDAGLUSE PLUS [Concomitant]
     Indication: Diabetes mellitus
     Dosage: 1 TAB/DAY
     Dates: start: 2012
  3. OLMESARTAN MEDOXOMIL [Concomitant]
     Active Substance: OLMESARTAN MEDOXOMIL
     Indication: Hypertension
     Dosage: 1 TAB/DAY
     Dates: start: 2011

REACTIONS (2)
  - Cerebrovascular accident [Recovered/Resolved]
  - COVID-19 [Recovered/Resolved]

NARRATIVE: CASE EVENT DATE: 20210101
